FAERS Safety Report 7699078-1 (Version None)
Quarter: 2011Q3

REPORT INFORMATION
  Report Type: 
  Country: None (occurrence: None)
  Receive Date: 20110819
  Receipt Date: 20110810
  Transmission Date: 20111222
  Serious: Yes (Other)
  Sender: FDA-Public Use
  Company Number: US-ASTRAZENECA-2011SE47997

PATIENT
  Age: 49 Year
  Sex: Female

DRUGS (9)
  1. SEROQUEL [Suspect]
     Indication: DEPRESSION
     Route: 048
     Dates: start: 20101201, end: 20110801
  2. ESTROGENIC SUBSTANCE [Concomitant]
  3. PROZAC [Concomitant]
  4. TRAMADOL HCL [Concomitant]
     Dosage: AS REQUIRED
     Route: 065
  5. RESTORIL [Concomitant]
  6. TYLENOL-500 [Concomitant]
     Dosage: AS REQUIRED
  7. VISTARIL [Concomitant]
  8. ZANTAC [Concomitant]
     Dosage: 300 MG, TWO TIMES A DAY
  9. NAPROXEN [Concomitant]
     Dosage: 500 MG, TWO TIMES A DAY

REACTIONS (6)
  - HEAD INJURY [None]
  - LOSS OF CONSCIOUSNESS [None]
  - BRAIN OEDEMA [None]
  - TREMOR [None]
  - FALL [None]
  - RHEUMATOID VASCULITIS [None]
